FAERS Safety Report 8451275-3 (Version None)
Quarter: 2012Q2

REPORT INFORMATION
  Report Type: 
  Country: None (occurrence: None)
  Receive Date: 20120620
  Receipt Date: 20120518
  Transmission Date: 20120825
  Serious: No
  Sender: FDA-Public Use
  Company Number: US-VERTEX PHARMACEUTICALS INC.-AE-2012-002230

PATIENT
  Sex: Female
  Weight: 90.8 kg

DRUGS (6)
  1. RIBAVIRIN [Concomitant]
     Indication: HEPATITIS C
     Route: 048
     Dates: start: 20120204
  2. XANAX [Concomitant]
     Indication: ANXIETY
     Route: 048
  3. EXFORGE [Concomitant]
     Indication: HYPERTENSION
     Route: 048
  4. INCIVEK [Suspect]
     Indication: HEPATITIS C
     Route: 048
     Dates: start: 20120204
  5. PEGASYS [Concomitant]
     Indication: HEPATITIS C
     Route: 058
     Dates: start: 20120204
  6. DIOVAN [Concomitant]
     Indication: BLOOD PRESSURE
     Dates: start: 20120331

REACTIONS (7)
  - THYROID FUNCTION TEST ABNORMAL [None]
  - INCORRECT DRUG ADMINISTRATION DURATION [None]
  - SCAB [None]
  - RASH MACULO-PAPULAR [None]
  - FATIGUE [None]
  - DIZZINESS [None]
  - JOINT SWELLING [None]
